FAERS Safety Report 4991583-1 (Version None)
Quarter: 2006Q2

REPORT INFORMATION
  Report Type: 
  Country: None (occurrence: None)
  Receive Date: 20060502
  Receipt Date: 20060419
  Transmission Date: 20061013
  Serious: Yes (Hospitalization)
  Sender: FDA-Public Use
  Company Number: 2006047125

PATIENT
  Age: 43 Year
  Sex: Male
  Weight: 66 kg

DRUGS (1)
  1. SALAZOPYRIN [Suspect]
     Indication: ILL-DEFINED DISORDER
     Dosage: 3 GRAM (DAILY), ORAL
     Route: 048
     Dates: start: 20060216, end: 20060322

REACTIONS (9)
  - ACUTE GENERALISED EXANTHEMATOUS PUSTULOSIS [None]
  - BACTERIAL INFECTION [None]
  - HUMAN HERPES VIRUS 6 SEROLOGY [None]
  - HYPOALBUMINAEMIA [None]
  - LIVER DISORDER [None]
  - LYMPHADENOPATHY [None]
  - OEDEMA PERIPHERAL [None]
  - PRURITUS GENERALISED [None]
  - SPLENOMEGALY [None]
